FAERS Safety Report 19423359 (Version 2)
Quarter: 2021Q3

REPORT INFORMATION
  Report Type: Spontaneous
  Country: GB (occurrence: GB)
  Receive Date: 20210616
  Receipt Date: 20210903
  Transmission Date: 20211014
  Serious: Yes (Other)
  Sender: FDA-Public Use
  Company Number: GB-ACCORD-227975

PATIENT
  Sex: Female

DRUGS (7)
  1. MITOXANTRONE [Suspect]
     Active Substance: MITOXANTRONE HYDROCHLORIDE
     Dosage: 2 COURSES
     Dates: start: 2016
  2. CYCLOPHOSPHAMIDE/CYCLOPHOSPHAMIDE MONOHYDRATE [Suspect]
     Active Substance: CYCLOPHOSPHAMIDE
     Dosage: 2 COURSES
     Dates: start: 2016
  3. PREDNISOLONE. [Suspect]
     Active Substance: PREDNISOLONE
     Dosage: 2 COURSES
     Dates: start: 2016
  4. ETOPOSIDE. [Suspect]
     Active Substance: ETOPOSIDE
     Dosage: 100MG/5ML
     Dates: start: 2016
  5. BLEOMYCIN [Suspect]
     Active Substance: BLEOMYCIN SULFATE
     Dosage: 2 COURSES
     Dates: start: 2016
  6. OFATUMUMAB [Suspect]
     Active Substance: OFATUMUMAB
     Dosage: 2 COURSES
     Dates: start: 2016
  7. ONCOVIN [Suspect]
     Active Substance: VINCRISTINE SULFATE
     Dates: start: 2016

REACTIONS (2)
  - Toxicity to various agents [Unknown]
  - Diffuse large B-cell lymphoma recurrent [Unknown]
